FAERS Safety Report 8153613-8 (Version None)
Quarter: 2012Q1

REPORT INFORMATION
  Report Type: 
  Country: None (occurrence: None)
  Receive Date: 20120221
  Receipt Date: 20120215
  Transmission Date: 20120608
  Serious: Yes (Hospitalization)
  Sender: FDA-Public Use
  Company Number: DE-ABBOTT-12P-062-0904832-00

PATIENT
  Sex: Male

DRUGS (1)
  1. HUMIRA [Suspect]
     Indication: PSORIASIS
     Route: 058
     Dates: start: 20111014, end: 20120214

REACTIONS (9)
  - IMPATIENCE [None]
  - DEPRESSED MOOD [None]
  - CONFUSIONAL STATE [None]
  - NASOPHARYNGITIS [None]
  - UNEVALUABLE EVENT [None]
  - HALLUCINATION [None]
  - DIARRHOEA [None]
  - WEIGHT DECREASED [None]
  - HYPERTENSION [None]
